FAERS Safety Report 6302911-9 (Version None)
Quarter: 2009Q3

REPORT INFORMATION
  Report Type: 
  Country: None (occurrence: None)
  Receive Date: 20090810
  Receipt Date: 20090806
  Transmission Date: 20100115
  Serious: Yes (Hospitalization)
  Sender: FDA-Public Use
  Company Number: A0800896A

PATIENT
  Age: 46 Year
  Sex: Male

DRUGS (1)
  1. ALLI [Suspect]
     Route: 048
     Dates: start: 20090713, end: 20090728

REACTIONS (18)
  - ABDOMINAL DISCOMFORT [None]
  - ABDOMINAL DISTENSION [None]
  - ABDOMINAL PAIN [None]
  - ABNORMAL FAECES [None]
  - APHASIA [None]
  - DIARRHOEA [None]
  - DISCOMFORT [None]
  - DIVERTICULITIS [None]
  - DYSARTHRIA [None]
  - FLATULENCE [None]
  - HYPERHIDROSIS [None]
  - LARGE INTESTINE PERFORATION [None]
  - LOSS OF CONSCIOUSNESS [None]
  - MIGRAINE [None]
  - PAINFUL DEFAECATION [None]
  - SEPSIS [None]
  - SHOCK [None]
  - TREATMENT NONCOMPLIANCE [None]
